FAERS Safety Report 7294989-3 (Version None)
Quarter: 2011Q1

REPORT INFORMATION
  Report Type: 
  Country: None (occurrence: None)
  Receive Date: 20110216
  Receipt Date: 20110210
  Transmission Date: 20110831
  Serious: No
  Sender: FDA-Public Use
  Company Number: US-JNJFOC-20110200406

PATIENT
  Sex: Female
  Weight: 58.97 kg

DRUGS (10)
  1. DURAGESIC-50 [Suspect]
     Route: 062
  2. FENTANYL-100 [Suspect]
     Indication: BACK PAIN
     Route: 062
  3. DURAGESIC-50 [Suspect]
     Route: 062
  4. VICODIN [Concomitant]
     Indication: BREAKTHROUGH PAIN
     Dosage: 5/500 MG TABLETS AS NEEDED
     Route: 048
  5. NEURONTIN [Concomitant]
     Indication: MUSCLE SPASMS
     Route: 048
  6. DURAGESIC-50 [Suspect]
     Indication: NECK PAIN
     Route: 062
  7. SOMA [Concomitant]
     Indication: MUSCLE SPASMS
     Route: 048
  8. NEURONTIN [Concomitant]
     Route: 048
  9. DURAGESIC-50 [Suspect]
     Indication: BACK PAIN
     Route: 062
  10. FENTANYL-100 [Suspect]
     Indication: NECK PAIN
     Route: 062

REACTIONS (7)
  - PRODUCT QUALITY ISSUE [None]
  - WRONG TECHNIQUE IN DRUG USAGE PROCESS [None]
  - HYPERHIDROSIS [None]
  - HOT FLUSH [None]
  - WITHDRAWAL SYNDROME [None]
  - PRODUCT ADHESION ISSUE [None]
  - COLD SWEAT [None]
